FAERS Safety Report 19447190 (Version 1)
Quarter: 2021Q2

REPORT INFORMATION
  Report Type: Spontaneous
  Country: US (occurrence: US)
  Receive Date: 20210622
  Receipt Date: 20210622
  Transmission Date: 20210717
  Serious: Yes (Other)
  Sender: FDA-Public Use
  Company Number: US-SA-2021SA203717

PATIENT
  Sex: Male

DRUGS (6)
  1. DUPIXENT [Suspect]
     Active Substance: DUPILUMAB
     Indication: DERMATITIS ATOPIC
     Route: 058
     Dates: start: 20210317
  2. TRESIBA [Concomitant]
     Active Substance: INSULIN DEGLUDEC
  3. EUCRISA [Concomitant]
     Active Substance: CRISABOROLE
  4. TYLENOL [Concomitant]
     Active Substance: ACETAMINOPHEN
  5. ADVIL [Concomitant]
     Active Substance: IBUPROFEN
  6. LUBRIDERM [PARAFFIN] [Concomitant]

REACTIONS (1)
  - Cardiac operation [Unknown]
